FAERS Safety Report 16309092 (Version 3)
Quarter: 2019Q3

REPORT INFORMATION
  Report Type: Spontaneous
  Country: US (occurrence: US)
  Receive Date: 20190514
  Receipt Date: 20190802
  Transmission Date: 20191004
  Serious: No
  Sender: FDA-Public Use
  Company Number: US-PFIZER INC-2019203270

PATIENT
  Age: 36 Year
  Sex: Male
  Weight: 100 kg

DRUGS (3)
  1. ETOPOSIDE. [Suspect]
     Active Substance: ETOPOSIDE
     Indication: NEOPLASM MALIGNANT
     Dosage: UNK
     Dates: start: 201611, end: 201703
  2. BLEOMYCIN SULFATE [Suspect]
     Active Substance: BLEOMYCIN SULFATE
     Indication: NEOPLASM MALIGNANT
     Dosage: UNK
     Dates: start: 201611, end: 201703
  3. PLATINUM [Suspect]
     Active Substance: PLATINUM
     Indication: NEOPLASM MALIGNANT
     Dosage: UNK
     Dates: start: 201611, end: 201703

REACTIONS (1)
  - Tinnitus [Not Recovered/Not Resolved]

NARRATIVE: CASE EVENT DATE: 2017
